FAERS Safety Report 7305120-X (Version None)
Quarter: 2011Q1

REPORT INFORMATION
  Report Type: 
  Country: None (occurrence: None)
  Receive Date: 20110222
  Receipt Date: 20110214
  Transmission Date: 20110831
  Serious: Yes (Hospitalization)
  Sender: FDA-Public Use
  Company Number: JP-PFIZER INC-2011033887

PATIENT
  Age: 88 Year
  Sex: Male
  Weight: 47.6 kg

DRUGS (13)
  1. LENDORMIN [Concomitant]
     Indication: INSOMNIA
     Dosage: 0.5 MG, 1X/DAY
     Route: 048
  2. RENIVACE [Concomitant]
     Indication: HYPERTENSION
     Dosage: 5 MG, 1X/DAY
     Route: 048
  3. AMLODIPINE [Concomitant]
     Indication: HYPERTENSION
     Dosage: 5 MG, 1X/DAY
     Route: 048
  4. ALESION [Concomitant]
     Indication: ALLERGY PROPHYLAXIS
     Dosage: 20 MG, 1X/DAY
     Route: 048
  5. SIMVASTATIN [Concomitant]
     Indication: HYPERLIPIDAEMIA
     Dosage: 5 MG, 1X/DAY
     Route: 048
  6. GELATIN [Concomitant]
     Indication: HEPATIC NEOPLASM MALIGNANT
     Dosage: UNK
     Dates: start: 20101101
  7. GASTER [Concomitant]
     Indication: GASTRITIS
     Dosage: 40 MG, 1X/DAY
  8. EPIRUBICIN HYDROCHLORIDE [Suspect]
     Indication: HEPATIC NEOPLASM MALIGNANT
     Dosage: 30 MG, HEPATIC ARTERY ADMINISTRATION
     Route: 013
     Dates: start: 20101101, end: 20101101
  9. AMLODIPINE [Concomitant]
     Dosage: UNK
     Route: 048
     Dates: start: 20100303
  10. FLIVAS [Concomitant]
     Indication: POLLAKIURIA
     Dosage: 50 MG, 1X/DAY
     Route: 048
  11. AZULFIDINE [Concomitant]
     Indication: OSTEOARTHRITIS
     Dosage: 1000 MG, 1X/DAY
  12. MUCOSTA [Concomitant]
     Indication: GASTRITIS
     Dosage: 300 MG, 1X/DAY
     Route: 048
  13. YODEL [Concomitant]
     Indication: CONSTIPATION
     Dosage: 160MG/DAY, 80MG/DAY

REACTIONS (2)
  - BILOMA [None]
  - FOOD POISONING [None]
